FAERS Safety Report 20944980 (Version 1)
Quarter: 2022Q2

REPORT INFORMATION
  Report Type: Spontaneous
  Country: CA (occurrence: CA)
  Receive Date: 20220610
  Receipt Date: 20220610
  Transmission Date: 20220721
  Serious: Yes (Other)
  Sender: FDA-Public Use
  Company Number: CA-PFIZER INC-202200809802

PATIENT
  Age: 34 Year
  Sex: Female

DRUGS (2)
  1. METHOTREXATE SODIUM [Suspect]
     Active Substance: METHOTREXATE SODIUM
     Dosage: 25 MG, WEEKLY
     Route: 058
     Dates: start: 202104
  2. PREDNISONE [Concomitant]
     Active Substance: PREDNISONE
     Dosage: 7.5 MG, IN PROGRESS, WEANING IMPOSSIBLE.

REACTIONS (9)
  - Loss of consciousness [Unknown]
  - Arrhythmia [Unknown]
  - Treatment failure [Unknown]
  - Dyspnoea [Unknown]
  - Arthralgia [Unknown]
  - Metabolic disorder [Unknown]
  - Lung infiltration [Unknown]
  - Hepatic mass [Unknown]
  - Nodule [Unknown]
